FAERS Safety Report 25775357 (Version 1)
Quarter: 2025Q3

REPORT INFORMATION
  Report Type: Spontaneous
  Country: US (occurrence: US)
  Receive Date: 20250909
  Receipt Date: 20250909
  Transmission Date: 20251021
  Serious: No
  Sender: ENDO
  Company Number: US-ENDO USA, INC.-2024-051018

PATIENT
  Sex: Female

DRUGS (2)
  1. CLONAZEPAM [Suspect]
     Active Substance: CLONAZEPAM
     Indication: Product used for unknown indication
     Route: 048
  2. CLONAZEPAM [Suspect]
     Active Substance: CLONAZEPAM
     Route: 048

REACTIONS (9)
  - Panic attack [Unknown]
  - Movement disorder [Unknown]
  - Muscle tightness [Unknown]
  - Sensation of foreign body [Unknown]
  - Anxiety [Unknown]
  - Paraesthesia [Unknown]
  - Sleep disorder [Unknown]
  - Malaise [Unknown]
  - Product quality issue [Unknown]

NARRATIVE: CASE EVENT DATE: 20240101
